FAERS Safety Report 7824788-2 (Version None)
Quarter: 2011Q4

REPORT INFORMATION
  Report Type: 
  Country: None (occurrence: None)
  Receive Date: 20111019
  Receipt Date: 20110121
  Transmission Date: 20120403
  Serious: No
  Sender: FDA-Public Use
  Company Number: US-BRISTOL-MYERS SQUIBB COMPANY-15504004

PATIENT
  Age: 62 Year
  Sex: Female

DRUGS (2)
  1. AVALIDE [Suspect]
     Indication: HYPERTENSION
     Dosage: PILLS;STARTED 2-3 YEARS AGO
  2. ATENOLOL [Suspect]

REACTIONS (3)
  - HYPERTENSION [None]
  - HEADACHE [None]
  - MEDICATION ERROR [None]
